FAERS Safety Report 15934031 (Version 2)
Quarter: 2019Q1

REPORT INFORMATION
  Report Type: Spontaneous
  Country: US (occurrence: US)
  Receive Date: 20190207
  Receipt Date: 20190301
  Transmission Date: 20190417
  Serious: No
  Sender: FDA-Public Use
  Company Number: US-SA-2019SA032437

PATIENT
  Age: 47 Year
  Sex: Female

DRUGS (1)
  1. DUPIXENT [Suspect]
     Active Substance: DUPILUMAB
     Indication: DERMATITIS ATOPIC
     Dosage: 3 TREATMENTS
     Route: 058
     Dates: start: 20181220

REACTIONS (4)
  - Dry skin [Unknown]
  - Erythema [Unknown]
  - Skin exfoliation [Unknown]
  - Injection site irritation [Unknown]
